FAERS Safety Report 9674759 (Version 3)
Quarter: 2013Q4

REPORT INFORMATION
  Report Type: Spontaneous
  Country: DE (occurrence: DE)
  Receive Date: 20131107
  Receipt Date: 20131120
  Transmission Date: 20140711
  Serious: Yes (Congenital Anomaly, Other)
  Sender: FDA-Public Use
  Company Number: DE-AMGEN-DEUSP2013077447

PATIENT
  Age: 4 Day
  Sex: Male
  Weight: 3 kg

DRUGS (2)
  1. NEUPOGEN [Suspect]
     Indication: AGRANULOCYTOSIS
     Dosage: UNK
     Route: 064
  2. CELESTAN                           /00008501/ [Concomitant]
     Dosage: UNK

REACTIONS (3)
  - Agranulocytosis [Recovered/Resolved]
  - Sepsis [Unknown]
  - Breech presentation [Unknown]
